FAERS Safety Report 6071486-4 (Version None)
Quarter: 2009Q1

REPORT INFORMATION
  Report Type: 
  Country: None (occurrence: None)
  Receive Date: 20090205
  Receipt Date: 20090205
  Transmission Date: 20090719
  Serious: Yes (Hospitalization)
  Sender: FDA-Public Use
  Company Number: None

PATIENT
  Age: 21 Year
  Sex: Female
  Weight: 49 kg

DRUGS (2)
  1. ZYPREXA ZYDIS [Suspect]
     Indication: CATATONIA
     Dosage: 5 MG BID BID PO
     Route: 048
     Dates: start: 20090128, end: 20090204
  2. ZYPREXA ZYDIS [Suspect]
     Indication: PSYCHOTIC DISORDER
     Dosage: 5 MG BID BID PO
     Route: 048
     Dates: start: 20090128, end: 20090204

REACTIONS (2)
  - COGWHEEL RIGIDITY [None]
  - MUSCULOSKELETAL STIFFNESS [None]
